FAERS Safety Report 24312100 (Version 1)
Quarter: 2024Q3

REPORT INFORMATION
  Report Type: Spontaneous
  Country: IN (occurrence: IN)
  Receive Date: 20240912
  Receipt Date: 20240912
  Transmission Date: 20241016
  Serious: Yes (Other)
  Sender: MYLAN
  Company Number: IN-MYLANLABS-2024M1082494

PATIENT
  Sex: Male

DRUGS (32)
  1. METHOTREXATE [Suspect]
     Active Substance: METHOTREXATE
     Indication: Philadelphia positive chronic myeloid leukaemia
     Dosage: UNK, AS A PART OF BFM-2002 CHEMOTHERAPY
     Route: 065
  2. METHOTREXATE [Suspect]
     Active Substance: METHOTREXATE
     Indication: Blast cell crisis
  3. DOXORUBICIN [Suspect]
     Active Substance: DOXORUBICIN
     Indication: Philadelphia positive chronic myeloid leukaemia
     Dosage: UNK, AS A PART OF BFM-2002 CHEMOTHERAPY
     Route: 065
  4. DOXORUBICIN [Suspect]
     Active Substance: DOXORUBICIN
     Indication: Blast cell crisis
  5. ETOPOSIDE [Suspect]
     Active Substance: ETOPOSIDE
     Indication: Philadelphia positive chronic myeloid leukaemia
     Dosage: UNK, AS A PART OF BFM-2002 CHEMOTHERAPY
     Route: 065
  6. ETOPOSIDE [Suspect]
     Active Substance: ETOPOSIDE
     Indication: Blast cell crisis
  7. IFOSFAMIDE [Suspect]
     Active Substance: IFOSFAMIDE
     Indication: Philadelphia positive chronic myeloid leukaemia
     Dosage: UNK, AS A PART OF BFM-2002 CHEMOTHERAPY
     Route: 065
  8. IFOSFAMIDE [Suspect]
     Active Substance: IFOSFAMIDE
     Indication: Blast cell crisis
  9. CYTARABINE [Suspect]
     Active Substance: CYTARABINE
     Indication: Philadelphia positive chronic myeloid leukaemia
     Dosage: UNK, AS A PART OF BFM-2002 CHEMOTHERAPY
     Route: 065
  10. CYTARABINE [Suspect]
     Active Substance: CYTARABINE
     Indication: Blast cell crisis
  11. PONATINIB [Suspect]
     Active Substance: PONATINIB
     Indication: Philadelphia positive chronic myeloid leukaemia
     Dosage: UNK
     Route: 065
  12. PONATINIB [Suspect]
     Active Substance: PONATINIB
     Indication: Blast cell crisis
  13. PREDNISONE [Suspect]
     Active Substance: PREDNISONE
     Indication: Philadelphia positive chronic myeloid leukaemia
     Dosage: UNK, AS A PART OF BFM-2002 CHEMOTHERAPY
     Route: 065
  14. PREDNISONE [Suspect]
     Active Substance: PREDNISONE
     Indication: Blast cell crisis
  15. VINCRISTINE [Suspect]
     Active Substance: VINCRISTINE
     Indication: Philadelphia positive chronic myeloid leukaemia
     Dosage: UNK, AS A PART OF BFM-2002 CHEMOTHERAPY
     Route: 065
  16. VINCRISTINE [Suspect]
     Active Substance: VINCRISTINE
     Indication: Blast cell crisis
  17. DAUNORUBICIN [Suspect]
     Active Substance: DAUNORUBICIN
     Indication: Philadelphia positive chronic myeloid leukaemia
     Dosage: UNK, AS A PART OF BFM-2002 CHEMOTHERAPY
     Route: 065
  18. DAUNORUBICIN [Suspect]
     Active Substance: DAUNORUBICIN
     Indication: Blast cell crisis
  19. ASPARAGINASE [Suspect]
     Active Substance: ASPARAGINASE
     Indication: Philadelphia positive chronic myeloid leukaemia
     Dosage: UNK, AS A PART OF BFM-2002 CHEMOTHERAPY
     Route: 065
  20. ASPARAGINASE [Suspect]
     Active Substance: ASPARAGINASE
     Indication: Blast cell crisis
  21. CYCLOPHOSPHAMIDE [Suspect]
     Active Substance: CYCLOPHOSPHAMIDE
     Indication: Philadelphia positive chronic myeloid leukaemia
     Dosage: UNK, AS A PART OF BFM-2002 CHEMOTHERAPY
     Route: 065
  22. CYCLOPHOSPHAMIDE [Suspect]
     Active Substance: CYCLOPHOSPHAMIDE
     Indication: Blast cell crisis
  23. MERCAPTOPURINE [Suspect]
     Active Substance: MERCAPTOPURINE
     Indication: Philadelphia positive chronic myeloid leukaemia
     Dosage: UNK, AS A PART OF BFM-2002 CHEMOTHERAPY
     Route: 065
  24. MERCAPTOPURINE [Suspect]
     Active Substance: MERCAPTOPURINE
     Indication: Blast cell crisis
  25. THIOGUANINE [Suspect]
     Active Substance: THIOGUANINE
     Indication: Philadelphia positive chronic myeloid leukaemia
     Dosage: UNK, AS A PART OF BFM-2002 CHEMOTHERAPY
     Route: 065
  26. THIOGUANINE [Suspect]
     Active Substance: THIOGUANINE
     Indication: Blast cell crisis
  27. DEXAMETHASONE [Suspect]
     Active Substance: DEXAMETHASONE
     Indication: Philadelphia positive chronic myeloid leukaemia
     Dosage: UNK, AS A PART OF BFM-2002 CHEMOTHERAPY
     Route: 065
  28. DEXAMETHASONE [Suspect]
     Active Substance: DEXAMETHASONE
     Indication: Blast cell crisis
  29. PREDNISOLONE [Suspect]
     Active Substance: PREDNISOLONE
     Indication: Philadelphia positive chronic myeloid leukaemia
     Dosage: UNK, AS A PART OF BFM-2002 CHEMOTHERAPY
     Route: 065
  30. PREDNISOLONE [Suspect]
     Active Substance: PREDNISOLONE
     Indication: Blast cell crisis
  31. VINDESINE [Suspect]
     Active Substance: VINDESINE
     Indication: Philadelphia positive chronic myeloid leukaemia
     Dosage: UNK, AS A PART OF BFM-2002 CHEMOTHERAPY
     Route: 065
  32. VINDESINE [Suspect]
     Active Substance: VINDESINE
     Indication: Blast cell crisis

REACTIONS (2)
  - Drug ineffective [Unknown]
  - Disease progression [Unknown]
